FAERS Safety Report 7780728-6 (Version None)
Quarter: 2011Q3

REPORT INFORMATION
  Report Type: 
  Country: None (occurrence: None)
  Receive Date: 20110927
  Receipt Date: 20110712
  Transmission Date: 20111222
  Serious: No
  Sender: FDA-Public Use
  Company Number: US-BRISTOL-MYERS SQUIBB COMPANY-15806615

PATIENT
  Sex: Male

DRUGS (9)
  1. NORVASC [Concomitant]
     Dates: start: 20100101
  2. ANTARA (MICRONIZED) [Concomitant]
     Indication: BLOOD CHOLESTEROL
  3. FISH OIL [Concomitant]
  4. AVAPRO [Suspect]
     Indication: HYPERTENSION
     Dates: start: 20090101
  5. LEVOTHYROXINE SODIUM [Concomitant]
  6. TAMSULOSIN HCL [Concomitant]
  7. COUMADIN [Concomitant]
     Indication: DEEP VEIN THROMBOSIS
  8. LIPITOR [Concomitant]
  9. MULTI-VITAMIN [Concomitant]

REACTIONS (1)
  - DRUG INEFFECTIVE [None]
